FAERS Safety Report 11705481 (Version 1)
Quarter: 2015Q4

REPORT INFORMATION
  Report Type: Spontaneous
  Country: GB (occurrence: GB)
  Receive Date: 20151106
  Receipt Date: 20151106
  Transmission Date: 20160304
  Serious: Yes (Other)
  Sender: FDA-Public Use
  Company Number: GB-WATSON-2015-23429

PATIENT
  Age: 68 Year
  Sex: Female
  Weight: 56.24 kg

DRUGS (1)
  1. ALENDRONIC ACID (UNKNOWN) [Suspect]
     Active Substance: ALENDRONIC ACID
     Indication: OSTEOPOROSIS
     Dosage: 1 DF, 1/WEEK
     Route: 048

REACTIONS (2)
  - Alopecia [Recovered/Resolved]
  - Pruritus genital [Recovered/Resolved]
